FAERS Safety Report 25223976 (Version 2)
Quarter: 2025Q2

REPORT INFORMATION
  Report Type: Spontaneous
  Country: CN (occurrence: CN)
  Receive Date: 20250422
  Receipt Date: 20250625
  Transmission Date: 20250716
  Serious: Yes (Life-Threatening)
  Sender: NOVARTIS
  Company Number: CN-002147023-NVSC2025CN064463

PATIENT
  Age: 47 Year
  Sex: Female

DRUGS (13)
  1. KESIMPTA [Suspect]
     Active Substance: OFATUMUMAB
     Indication: Anti-SRP antibody positive
     Dosage: 20 MG, QMO (FIRST)
     Route: 058
  2. KESIMPTA [Suspect]
     Active Substance: OFATUMUMAB
     Indication: Immune-mediated myositis
     Dosage: 20 MG, QMO (SECOND)
     Route: 058
  3. KESIMPTA [Suspect]
     Active Substance: OFATUMUMAB
     Dosage: 20 MG, QMO (THIRD)
     Route: 058
  4. ENTECAVIR [Concomitant]
     Active Substance: ENTECAVIR
     Indication: Autoimmune hepatitis
     Dosage: 10 MG, QD
     Route: 065
  5. PREDNISONE [Concomitant]
     Active Substance: PREDNISONE
     Indication: Autoimmune hepatitis
     Dosage: 4 MG, QD (FOR 2 MONTHS)
     Route: 065
  6. METHYLPREDNISOLONE [Concomitant]
     Active Substance: METHYLPREDNISOLONE
     Indication: Anti-SRP antibody positive
     Dosage: 1 G, QD (FOR 5 DAYS)
     Route: 065
  7. METHYLPREDNISOLONE [Concomitant]
     Active Substance: METHYLPREDNISOLONE
     Indication: Immune-mediated myositis
  8. RITUXIMAB [Concomitant]
     Active Substance: RITUXIMAB
     Indication: Anti-SRP antibody positive
     Route: 065
  9. RITUXIMAB [Concomitant]
     Active Substance: RITUXIMAB
     Indication: Immune-mediated myositis
  10. CYCLOPHOSPHAMIDE [Concomitant]
     Active Substance: CYCLOPHOSPHAMIDE
     Indication: Anti-SRP antibody positive
     Route: 065
  11. CYCLOPHOSPHAMIDE [Concomitant]
     Active Substance: CYCLOPHOSPHAMIDE
     Indication: Immune-mediated myositis
  12. Immunoglobulin [Concomitant]
     Indication: Anti-SRP antibody positive
     Dosage: 0.4 MG/KG, QD
     Route: 042
  13. Immunoglobulin [Concomitant]
     Indication: Immune-mediated myositis
     Route: 042

REACTIONS (2)
  - B-lymphocyte count decreased [Not Recovered/Not Resolved]
  - Drug effective for unapproved indication [Unknown]
